FAERS Safety Report 10385088 (Version 1)
Quarter: 2014Q3

REPORT INFORMATION
  Report Type: Spontaneous
  Country: JP (occurrence: JP)
  Receive Date: 20140814
  Receipt Date: 20140814
  Transmission Date: 20150326
  Serious: Yes (Other)
  Sender: FDA-Public Use
  Company Number: PHHY2013JP160815

PATIENT
  Age: 83 Year
  Sex: Male

DRUGS (1)
  1. GLIVEC [Suspect]
     Active Substance: IMATINIB MESYLATE
     Indication: CHRONIC MYELOID LEUKAEMIA
     Dosage: 200 MG DAILY
     Dates: start: 200809, end: 20120809

REACTIONS (3)
  - Oedema [Unknown]
  - Cerebral infarction [Recovering/Resolving]
  - Cerebral haemorrhage [Recovering/Resolving]
